FAERS Safety Report 23903098 (Version 1)
Quarter: 2024Q2

REPORT INFORMATION
  Report Type: Spontaneous
  Country: US (occurrence: US)
  Receive Date: 20240527
  Receipt Date: 20240527
  Transmission Date: 20240716
  Serious: Yes (Other)
  Sender: FDA-Public Use
  Company Number: US-BRISTOL-MYERS SQUIBB COMPANY-2024-080127

PATIENT
  Age: 39 Year
  Sex: Male
  Weight: 47.63 kg

DRUGS (1)
  1. OPDIVO [Suspect]
     Active Substance: NIVOLUMAB
     Indication: Gastric cancer
     Dosage: DOSE: 240 MG, FREQ: EVERY TWO WEEKS?ROUTE: INFUSION
     Dates: end: 202405

REACTIONS (1)
  - Malignant neoplasm progression [Unknown]
